FAERS Safety Report 8272651 (Version 3)
Quarter: 2013Q2

REPORT INFORMATION
  Report Type: Spontaneous
  Country: US (occurrence: None)
  Receive Date: 20111122
  Receipt Date: 20120703
  Transmission Date: 20140414
  Serious: No
  Sender: FDA-Public Use
  Company Number: PHHY2011US61187

PATIENT
  Sex: Female

DRUGS (5)
  1. GILENYA [Suspect]
     Indication: MULTIPLE SCLEROSIS
     Dosage: 0.5 MG, QD, ORAL
     Route: 048
     Dates: start: 20110913, end: 201111
  2. CITALOPRAM HYDROBROMIDE [Concomitant]
  3. AMBIEN [Concomitant]
  4. ASPIRIN (ACETYLSALICYLIC ACID) [Concomitant]
  5. NUVIGIL [Concomitant]

REACTIONS (4)
  - CHEST PAIN [None]
  - CHEST DISCOMFORT [None]
  - Pain [None]
  - Vision blurred [None]
